FAERS Safety Report 6712862-3 (Version None)
Quarter: 2010Q2

REPORT INFORMATION
  Report Type: 
  Country: None (occurrence: None)
  Receive Date: 20100505
  Receipt Date: 20100505
  Transmission Date: 20101027
  Serious: Yes (Hospitalization)
  Sender: FDA-Public Use
  Company Number: None

PATIENT
  Age: 49 Year
  Sex: Male
  Weight: 108 kg

DRUGS (2)
  1. OCTREOTIDE ACETATE [Suspect]
     Indication: CROHN'S DISEASE
     Dosage: 100 MCG TID SQ
     Route: 058
     Dates: start: 20100201, end: 20100330
  2. BUDESONIDE [Suspect]
     Indication: CROHN'S DISEASE
     Dosage: 9 MG EVERY DAY PO
     Route: 048
     Dates: start: 20100214

REACTIONS (3)
  - HYPERGLYCAEMIA [None]
  - POLYDIPSIA [None]
  - POLYURIA [None]
